FAERS Safety Report 7466875-7 (Version None)
Quarter: 2011Q2

REPORT INFORMATION
  Report Type: 
  Country: None (occurrence: None)
  Receive Date: 20110509
  Receipt Date: 20110503
  Transmission Date: 20111010
  Serious: Yes (Death)
  Sender: FDA-Public Use
  Company Number: SE-WATSON-2011-05169

PATIENT
  Age: 74 Year
  Sex: Male

DRUGS (2)
  1. HEPARIN SODIUM [Suspect]
     Indication: ISCHAEMIA
     Dosage: FOR 12 HOURS
     Route: 013
  2. ACTIVASE [Concomitant]
     Indication: ISCHAEMIA
     Dosage: FOR 12 HOURS
     Route: 013

REACTIONS (1)
  - HAEMORRHAGIC STROKE [None]
